FAERS Safety Report 17419596 (Version 3)
Quarter: 2020Q2

REPORT INFORMATION
  Report Type: Spontaneous
  Country: IT (occurrence: IT)
  Receive Date: 20200214
  Receipt Date: 20200620
  Transmission Date: 20200713
  Serious: Yes (Life-Threatening)
  Sender: FDA-Public Use
  Company Number: IT-ACCORD-172509

PATIENT
  Age: 44 Year
  Sex: Female

DRUGS (2)
  1. CLOZAPINE ACCORD [Suspect]
     Active Substance: CLOZAPINE
     Indication: SCHIZOPHRENIA
     Route: 048
     Dates: start: 20171003, end: 20171031
  2. XEPLION [Concomitant]
     Active Substance: PALIPERIDONE PALMITATE
     Indication: SCHIZOPHRENIA
     Dosage: STRENGTH: 100 MG
     Route: 030
     Dates: start: 20170926, end: 20171126

REACTIONS (4)
  - Pericarditis [Recovered/Resolved with Sequelae]
  - Tricuspid valve incompetence [Recovered/Resolved with Sequelae]
  - Aortic valve incompetence [Recovered/Resolved with Sequelae]
  - Circulatory collapse [Recovered/Resolved with Sequelae]

NARRATIVE: CASE EVENT DATE: 20171031
